FAERS Safety Report 5060111-7 (Version None)
Quarter: 2006Q3

REPORT INFORMATION
  Report Type: 
  Country: None (occurrence: None)
  Receive Date: 20060719
  Receipt Date: 20060706
  Transmission Date: 20061208
  Serious: Yes (Hospitalization)
  Sender: FDA-Public Use
  Company Number: A-JP2006-12569

PATIENT
  Age: 45 Year
  Sex: Female

DRUGS (2)
  1. TRACLEER [Suspect]
     Indication: PULMONARY HYPERTENSION
     Dosage: 125 MG, BID; ORAL
     Route: 048
     Dates: start: 20051025
  2. BERAPROST SODIUM [Concomitant]

REACTIONS (3)
  - CARDIAC FAILURE [None]
  - HEPATIC ENZYME INCREASED [None]
  - LIVER DISORDER [None]
